FAERS Safety Report 5907092-9 (Version None)
Quarter: 2008Q4

REPORT INFORMATION
  Report Type: 
  Country: None (occurrence: None)
  Receive Date: 20081003
  Receipt Date: 20080918
  Transmission Date: 20090506
  Serious: Yes (Other)
  Sender: FDA-Public Use
  Company Number: GB-BAYER-200827342GPV

PATIENT
  Age: 18 Month
  Sex: Female

DRUGS (6)
  1. ALEMTUZUMAB [Suspect]
     Indication: PROPHYLAXIS AGAINST GRAFT VERSUS HOST DISEASE
     Route: 065
  2. CYCLOSPORINE [Concomitant]
     Indication: PROPHYLAXIS AGAINST GRAFT VERSUS HOST DISEASE
     Route: 065
  3. METHOTREXATE [Concomitant]
     Indication: PROPHYLAXIS AGAINST GRAFT VERSUS HOST DISEASE
     Route: 065
  4. A-INTERFERON [Concomitant]
     Indication: IMMUNOMODULATORY THERAPY
     Route: 065
  5. DAUNOXOME [Concomitant]
     Indication: ACUTE MYELOID LEUKAEMIA
     Route: 065
  6. CLOFARABINE [Concomitant]
     Indication: ACUTE MYELOID LEUKAEMIA
     Route: 065

REACTIONS (3)
  - ADENOVIRUS INFECTION [None]
  - PULMONARY HYPERTENSION [None]
  - RENAL IMPAIRMENT [None]
